FAERS Safety Report 10248450 (Version 1)
Quarter: 2014Q2

REPORT INFORMATION
  Report Type: Spontaneous
  Country: US (occurrence: US)
  Receive Date: 20140620
  Receipt Date: 20140620
  Transmission Date: 20141212
  Serious: No
  Sender: FDA-Public Use
  Company Number: US-BIOGENIDEC-2014BI057210

PATIENT
  Age: 66 Year
  Sex: Male

DRUGS (11)
  1. TECFIDERA [Suspect]
     Indication: MULTIPLE SCLEROSIS
     Route: 048
  2. ZOLPIDEM TARTRATE [Concomitant]
  3. PRAVASTATIN SODIUM [Concomitant]
  4. NUVIGIL [Concomitant]
  5. HYDROMORPHONE HCL [Concomitant]
  6. HYDROCODONE-ACETAMINOPHEN [Concomitant]
  7. GLIPIZIDE ER [Concomitant]
  8. GABAPENTIN [Concomitant]
  9. CYMBALTA [Concomitant]
  10. BACLOFEN [Concomitant]
  11. AMITIZA [Concomitant]

REACTIONS (1)
  - Urticaria [Unknown]
